APPROVED DRUG PRODUCT: METAPROTERENOL SULFATE
Active Ingredient: METAPROTERENOL SULFATE
Strength: 10MG/5ML
Dosage Form/Route: SYRUP;ORAL
Application: A071656 | Product #001
Applicant: MORTON GROVE PHARMACEUTICALS INC
Approved: Oct 13, 1987 | RLD: No | RS: No | Type: DISCN